FAERS Safety Report 22263713 (Version 1)
Quarter: 2023Q2

REPORT INFORMATION
  Report Type: Spontaneous
  Country: US (occurrence: US)
  Receive Date: 20230428
  Receipt Date: 20230428
  Transmission Date: 20230721
  Serious: Yes (Hospitalization, Other)
  Sender: FDA-Public Use
  Company Number: US-SPECGX-T202301044

PATIENT
  Age: 63 Year
  Sex: Female

DRUGS (2)
  1. FENTANYL TRANSDERMAL SYSTEM [Suspect]
     Active Substance: FENTANYL
     Indication: Procedural pain
     Dosage: UNK
     Route: 062
     Dates: start: 2013
  2. FENTANYL TRANSDERMAL SYSTEM [Suspect]
     Active Substance: FENTANYL
     Indication: Pain management
     Dosage: 12 MCG/HR
     Route: 062

REACTIONS (8)
  - Hospitalisation [Unknown]
  - Coma [Unknown]
  - Deafness [Unknown]
  - Seizure [Unknown]
  - Tongue biting [Unknown]
  - Vomiting [Unknown]
  - Weight decreased [Unknown]
  - Wrong technique in product usage process [Unknown]
